FAERS Safety Report 4448436-7 (Version None)
Quarter: 2004Q3

REPORT INFORMATION
  Report Type: 
  Country: None (occurrence: None)
  Receive Date: 20040909
  Receipt Date: 20040909
  Transmission Date: 20050211
  Serious: Yes (Other)
  Sender: FDA-Public Use
  Company Number: None

PATIENT
  Age: 64 Year
  Sex: Female
  Weight: 74.8435 kg

DRUGS (4)
  1. OXAZEPAM [Suspect]
     Indication: ANXIETY
     Dosage: 1TID
  2. FLURAZEPAM [Concomitant]
  3. GEODON [Concomitant]
  4. ZOLOFT [Concomitant]

REACTIONS (3)
  - ANXIETY [None]
  - DRUG INEFFECTIVE [None]
  - PHARMACEUTICAL PRODUCT COMPLAINT [None]
